FAERS Safety Report 23584342 (Version 1)
Quarter: 2024Q1

REPORT INFORMATION
  Report Type: Spontaneous
  Country: US (occurrence: US)
  Receive Date: 20240301
  Receipt Date: 20240301
  Transmission Date: 20240409
  Serious: No
  Sender: FDA-Public Use
  Company Number: US-009507513-2402USA004357

PATIENT
  Age: 84 Year
  Sex: Male

DRUGS (3)
  1. VERQUVO [Suspect]
     Active Substance: VERICIGUAT
     Indication: Implantable defibrillator insertion
     Dosage: 5 MILLIGRAM, QD
     Route: 048
     Dates: start: 20231225
  2. ENTRESTO [Concomitant]
     Active Substance: SACUBITRIL\VALSARTAN
     Dosage: 49/51MG TWICE DAILY
  3. CARVEDILOL [Concomitant]
     Active Substance: CARVEDILOL
     Dosage: 31.25 MILLIGRAM, BID

REACTIONS (4)
  - Rash [Recovered/Resolved]
  - Arthralgia [Not Recovered/Not Resolved]
  - Dysstasia [Not Recovered/Not Resolved]
  - Product use in unapproved indication [Unknown]

NARRATIVE: CASE EVENT DATE: 20231225
